FAERS Safety Report 4359972-6 (Version None)
Quarter: 2004Q2

REPORT INFORMATION
  Report Type: 
  Country: None (occurrence: None)
  Receive Date: 20040513
  Receipt Date: 20040430
  Transmission Date: 20050107
  Serious: Yes (Other)
  Sender: FDA-Public Use
  Company Number: HQWYE761518SEP03

PATIENT
  Age: 55 Year
  Sex: Female
  Weight: 95.34 kg

DRUGS (3)
  1. PREMPRO [Suspect]
     Indication: MENOPAUSAL SYMPTOMS
     Dosage: UNSPECIFIED DOSAGE DAILY, FOR 4 YEARS, ORAL
     Route: 048
     Dates: start: 19960701, end: 20000501
  2. CELEBREX [Concomitant]
  3. EFFEXOR [Concomitant]

REACTIONS (7)
  - ARTHRALGIA [None]
  - BUNDLE BRANCH BLOCK LEFT [None]
  - CARDIAC DISORDER [None]
  - DISTURBANCE IN ATTENTION [None]
  - EJECTION FRACTION DECREASED [None]
  - MEMORY IMPAIRMENT [None]
  - PITUITARY TUMOUR [None]
